FAERS Safety Report 7837764-0 (Version None)
Quarter: 2011Q4

REPORT INFORMATION
  Report Type: 
  Country: None (occurrence: None)
  Receive Date: 20111024
  Receipt Date: 20100628
  Transmission Date: 20120403
  Serious: No
  Sender: FDA-Public Use
  Company Number: US-BAYER-201026734NA

PATIENT
  Age: 66 Year
  Sex: Male

DRUGS (3)
  1. NIASPAN [Concomitant]
  2. ALLOPURINOL [Concomitant]
  3. CIPROFLOXACIN [Suspect]
     Indication: INFLUENZA
     Dosage: UNK
     Route: 048
     Dates: start: 20100518

REACTIONS (1)
  - TENDON PAIN [None]
